FAERS Safety Report 5011449-0 (Version None)
Quarter: 2006Q2

REPORT INFORMATION
  Report Type: 
  Country: None (occurrence: None)
  Receive Date: 20060404
  Receipt Date: 20051102
  Transmission Date: 20061013
  Serious: No
  Sender: FDA-Public Use
  Company Number: US_0511123682

PATIENT
  Age: 28 Year
  Sex: 0

DRUGS (1)
  1. CYMBALTA [Suspect]
     Indication: PAIN
     Dosage: 60 MG
     Dates: start: 20050718, end: 20050901

REACTIONS (1)
  - HYPERSENSITIVITY [None]
